FAERS Safety Report 9098635 (Version 2)
Quarter: 2013Q1

REPORT INFORMATION
  Report Type: Spontaneous
  Country: US (occurrence: US)
  Receive Date: 20130213
  Receipt Date: 20130321
  Transmission Date: 20140127
  Serious: Yes (Hospitalization)
  Sender: FDA-Public Use
  Company Number: US-PFIZER INC-2013053300

PATIENT
  Age: 60 Year
  Sex: Female
  Weight: 56.7 kg

DRUGS (9)
  1. ZYVOX [Suspect]
     Indication: SEPSIS
     Dosage: 600 MG, 2X/DAY
     Route: 042
     Dates: start: 20130129
  2. ZYVOX [Suspect]
     Indication: PNEUMONIA STAPHYLOCOCCAL
     Dosage: 600 MG, 2X/DAY
     Route: 042
     Dates: start: 201301
  3. ZYVOX [Suspect]
     Indication: STAPHYLOCOCCUS TEST POSITIVE
  4. ZYVOX [Suspect]
     Indication: STAPHYLOCOCCAL SEPSIS
  5. ZYVOX [Suspect]
     Indication: PNEUMONIA STAPHYLOCOCCAL
  6. ROBAXIN [Suspect]
     Indication: MUSCLE SPASMS
     Dosage: 500 MG, AS NEEDED (UP TO THREE TIMES A DAY)
  7. VICODIN [Concomitant]
     Indication: PAIN
     Dosage: 5/325 MG, AS NEEDED
  8. NEURONTIN [Concomitant]
     Dosage: UNK
  9. METOPROLOL [Concomitant]
     Dosage: UNK

REACTIONS (5)
  - Extradural abscess [Recovering/Resolving]
  - Back pain [Not Recovered/Not Resolved]
  - Pain in extremity [Not Recovered/Not Resolved]
  - Muscle spasms [Not Recovered/Not Resolved]
  - Headache [Recovering/Resolving]
